FAERS Safety Report 8489020-8 (Version None)
Quarter: 2012Q2

REPORT INFORMATION
  Report Type: 
  Country: None (occurrence: None)
  Receive Date: 20120626
  Receipt Date: 20120613
  Transmission Date: 20120825
  Serious: Yes (Hospitalization, Other)
  Sender: FDA-Public Use
  Company Number: 2012SP032707

PATIENT
  Age: 64 Year
  Sex: Male

DRUGS (8)
  1. TELAVIC (TELAPREVIR) (INVESTIGATIONAL DRUG) [Suspect]
     Indication: HEPATITIS C
     Dosage: 2250 MG;QD;PO, 1500 MG;QD;PO
     Route: 048
     Dates: start: 20120215, end: 20120416
  2. TELAVIC (TELAPREVIR) (INVESTIGATIONAL DRUG) [Suspect]
     Indication: HEPATITIS C
     Dosage: 2250 MG;QD;PO, 1500 MG;QD;PO
     Route: 048
     Dates: start: 20120417
  3. VANCOMYCIN [Concomitant]
  4. REBETOL [Suspect]
     Indication: HEPATITIS C
     Dosage: 800 MG;QD;PO, 400 MG;QD;PO 200 MG;QD;PO
     Route: 048
     Dates: start: 20120229
  5. REBETOL [Suspect]
     Indication: HEPATITIS C
     Dosage: 800 MG;QD;PO, 400 MG;QD;PO 200 MG;QD;PO
     Route: 048
     Dates: start: 20120403
  6. REBETOL [Suspect]
     Indication: HEPATITIS C
     Dosage: 800 MG;QD;PO, 400 MG;QD;PO 200 MG;QD;PO
     Route: 048
     Dates: start: 20120215, end: 20120228
  7. PEG-INTRON [Suspect]
     Indication: HEPATITIS C
     Dosage: 1.5 MCG/KG;QW;PARN, 1.5 MCG/KG; ;PARN
     Dates: start: 20120215, end: 20120410
  8. PEG-INTRON [Suspect]
     Indication: HEPATITIS C
     Dosage: 1.5 MCG/KG;QW;PARN, 1.5 MCG/KG; ;PARN
     Dates: start: 20120424

REACTIONS (8)
  - OEDEMA DUE TO HEPATIC DISEASE [None]
  - CELLULITIS [None]
  - PURULENCE [None]
  - RASH [None]
  - RENAL IMPAIRMENT [None]
  - ASCITES [None]
  - STAPHYLOCOCCAL INFECTION [None]
  - ANAEMIA [None]
